FAERS Safety Report 4405774-1 (Version None)
Quarter: 2004Q3

REPORT INFORMATION
  Report Type: 
  Country: None (occurrence: None)
  Receive Date: 20040723
  Receipt Date: 20031209
  Transmission Date: 20050211
  Serious: No
  Sender: FDA-Public Use
  Company Number: US-GLAXOSMITHKLINE-A0442531A

PATIENT
  Age: 62 Year
  Sex: Female

DRUGS (4)
  1. AVANDIA [Suspect]
     Dosage: 8MG TWICE PER DAY
     Route: 048
  2. GLYNASE [Concomitant]
  3. TOPROL-XL [Concomitant]
  4. DIOVAN [Concomitant]

REACTIONS (3)
  - BLOOD PRESSURE INCREASED [None]
  - OEDEMA [None]
  - WEIGHT INCREASED [None]
